FAERS Safety Report 14776404 (Version 4)
Quarter: 2018Q2

REPORT INFORMATION
  Report Type: Report from Study
  Country: None (occurrence: US)
  Receive Date: 20180418
  Receipt Date: 20180621
  Transmission Date: 20180711
  Serious: Yes (Other)
  Sender: FDA-Public Use
  Company Number: US-ABBVIE-18K-163-2325621-00

PATIENT
  Age: 52 Year
  Sex: Female
  Weight: 87.17 kg

DRUGS (13)
  1. HUMIRA [Suspect]
     Active Substance: ADALIMUMAB
     Dosage: LOADING DOSE
     Route: 058
  2. CLARITIN [Concomitant]
     Active Substance: LORATADINE
     Indication: PRODUCT USED FOR UNKNOWN INDICATION
  3. HUMIRA [Suspect]
     Active Substance: ADALIMUMAB
     Route: 058
     Dates: end: 2014
  4. HUMIRA [Suspect]
     Active Substance: ADALIMUMAB
     Dosage: DAY 29
     Route: 058
     Dates: start: 20180504, end: 20180504
  5. HUMIRA [Suspect]
     Active Substance: ADALIMUMAB
     Dosage: LOADING DOSE
     Route: 058
     Dates: start: 20180406, end: 20180406
  6. LISINOPRIL. [Concomitant]
     Active Substance: LISINOPRIL
     Indication: PRODUCT USED FOR UNKNOWN INDICATION
  7. BIOTIN [Concomitant]
     Active Substance: BIOTIN
     Indication: PRODUCT USED FOR UNKNOWN INDICATION
  8. ALIGN PROBIOTIC [Concomitant]
     Indication: PRODUCT USED FOR UNKNOWN INDICATION
  9. HUMIRA [Suspect]
     Active Substance: ADALIMUMAB
     Indication: CROHN^S DISEASE
     Dosage: LOADING DOSE
     Route: 058
     Dates: start: 2010, end: 2010
  10. HUMIRA [Suspect]
     Active Substance: ADALIMUMAB
     Dosage: LOADING DOSE
     Route: 058
     Dates: start: 20180420, end: 20180420
  11. HUMIRA [Suspect]
     Active Substance: ADALIMUMAB
     Route: 058
     Dates: start: 2018
  12. VITAMIN D [Concomitant]
     Active Substance: CHOLECALCIFEROL
     Indication: PRODUCT USED FOR UNKNOWN INDICATION
  13. VITAMIN B12 [Concomitant]
     Active Substance: CYANOCOBALAMIN
     Indication: PRODUCT USED FOR UNKNOWN INDICATION

REACTIONS (11)
  - Fistula [Unknown]
  - Crohn^s disease [Recovering/Resolving]
  - Intestinal villi atrophy [Unknown]
  - Diarrhoea [Not Recovered/Not Resolved]
  - Abdominal adhesions [Unknown]
  - Post procedural diarrhoea [Unknown]
  - Loss of personal independence in daily activities [Unknown]
  - Abdominal pain upper [Unknown]
  - Enteritis [Unknown]
  - Decreased appetite [Not Recovered/Not Resolved]
  - Infrequent bowel movements [Unknown]

NARRATIVE: CASE EVENT DATE: 2014
